FAERS Safety Report 8929282 (Version 1)
Quarter: 2012Q4

REPORT INFORMATION
  Report Type: Spontaneous
  Country: US (occurrence: None)
  Receive Date: 20121126
  Receipt Date: 20121126
  Transmission Date: 20130627
  Serious: Yes (Life-Threatening, Hospitalization)
  Sender: FDA-Public Use
  Company Number: None

PATIENT
  Sex: Male
  Weight: 99.79 kg

DRUGS (2)
  1. METOPROLOL [Suspect]
     Indication: BLOOD PRESSURE HIGH
     Dosage: 12 1/2 MG TWICE A DAY
     Dates: start: 20111118, end: 20120920
  2. AVODART [Suspect]
     Indication: PROSTATIC DISORDER
     Dosage: 0.5 MG ONCE A DAY
     Dates: start: 20120901, end: 20120920

REACTIONS (5)
  - Drug interaction [None]
  - Heart rate decreased [None]
  - Drug withdrawal syndrome [None]
  - Mental disorder [None]
  - Abnormal behaviour [None]
